FAERS Safety Report 23327606 (Version 1)
Quarter: 2023Q4

REPORT INFORMATION
  Report Type: Report from Study
  Country: AE (occurrence: None)
  Receive Date: 20231221
  Receipt Date: 20231221
  Transmission Date: 20240110
  Serious: Yes (Hospitalization)
  Sender: FDA-Public Use
  Company Number: 2023A278206

PATIENT
  Age: 65 Year
  Sex: Male
  Weight: 92 kg

DRUGS (4)
  1. EVUSHELD [Suspect]
     Active Substance: CILGAVIMAB\TIXAGEVIMAB
     Indication: COVID-19
     Dosage: 600 MG, ADMINISTERED AS TWO SEPARATE IM INJECTIONS ?(300 MG AZD8895 AND 300 MG AZD1061), ONCE/SIN...
     Route: 030
     Dates: start: 20230105
  2. SARS-COV-2 VACCINE (VERO CELL), INACTIVATED [Concomitant]
     Indication: COVID-19
     Dates: start: 20210119
  3. SARS-COV-2 VACCINE (VERO CELL), INACTIVATED [Concomitant]
     Indication: COVID-19
     Dates: start: 20210222
  4. SARS-COV-2 VACCINE (VERO CELL), INACTIVATED [Concomitant]
     Indication: COVID-19
     Dates: start: 20210729

REACTIONS (1)
  - Syncope [Recovered/Resolved]

NARRATIVE: CASE EVENT DATE: 20231202
